FAERS Safety Report 14291988 (Version 1)
Quarter: 2017Q4

REPORT INFORMATION
  Report Type: Spontaneous
  Country: US (occurrence: US)
  Receive Date: 20171215
  Receipt Date: 20171215
  Transmission Date: 20180321
  Serious: No
  Sender: FDA-Public Use
  Company Number: US-NOVOPROD-567592

PATIENT
  Age: 59 Year
  Sex: Female

DRUGS (2)
  1. LEVEMIR [Suspect]
     Active Substance: INSULIN DETEMIR
     Indication: TYPE 1 DIABETES MELLITUS
     Dosage: 21 U IN THE MORNING AND 2 U AT NIGHT
     Route: 058
     Dates: end: 20171004
  2. LEVEMIR [Suspect]
     Active Substance: INSULIN DETEMIR
     Dosage: 21 U IN THE MORNING AND 2 U AT NIGHTUNK
     Route: 058
     Dates: end: 20171004

REACTIONS (5)
  - Fatigue [Recovered/Resolved]
  - Blood glucose increased [Unknown]
  - Blood glucose fluctuation [Recovered/Resolved]
  - Migraine [Recovered/Resolved]
  - Vision blurred [Unknown]
